FAERS Safety Report 4300675-1 (Version None)
Quarter: 2004Q1

REPORT INFORMATION
  Report Type: 
  Country: None (occurrence: None)
  Receive Date: 20040218
  Receipt Date: 20040203
  Transmission Date: 20041129
  Serious: Yes (Death, Other)
  Sender: FDA-Public Use
  Company Number: USA040156806

PATIENT
  Age: 21 Year
  Sex: Female
  Weight: 72 kg

DRUGS (2)
  1. XIGRIS [Suspect]
     Indication: SEPSIS
     Dosage: 24 UG/KG/HR
     Dates: start: 20031227
  2. NOREPINEPHRINE [Concomitant]

REACTIONS (8)
  - ACTIVATED PARTIAL THROMBOPLASTIN TIME PROLONGED [None]
  - ANOXIC ENCEPHALOPATHY [None]
  - BRAIN OEDEMA [None]
  - HAEMORRHAGE INTRACRANIAL [None]
  - INTERNATIONAL NORMALISED RATIO INCREASED [None]
  - PLATELET COUNT DECREASED [None]
  - PROTHROMBIN TIME PROLONGED [None]
  - PUPIL FIXED [None]
